FAERS Safety Report 18337412 (Version 2)
Quarter: 2020Q4

REPORT INFORMATION
  Report Type: Spontaneous
  Country: US (occurrence: US)
  Receive Date: 20201002
  Receipt Date: 20201007
  Transmission Date: 20210113
  Serious: Yes (Hospitalization)
  Sender: FDA-Public Use
  Company Number: US-TEVA-2020-US-1834503

PATIENT
  Age: 65 Year
  Sex: Male

DRUGS (2)
  1. SYNRIBO [Suspect]
     Active Substance: OMACETAXINE MEPESUCCINATE
     Indication: CHRONIC MYELOID LEUKAEMIA
     Dosage: DOSAGE:2.5MG/0.71ML?FREQUENCY:BID X 14 DAYS
     Route: 065
     Dates: start: 20200729
  2. SYNRIBO [Suspect]
     Active Substance: OMACETAXINE MEPESUCCINATE
     Dosage: DOSAGE:2.5MG/0.71ML?FREQUENCY:BID X 14 DAYS
     Route: 065
     Dates: start: 20200728

REACTIONS (5)
  - Nausea [Unknown]
  - Malaise [Unknown]
  - Dizziness [Unknown]
  - Dysgeusia [Unknown]
  - Vomiting [Unknown]

NARRATIVE: CASE EVENT DATE: 2020
